FAERS Safety Report 10487315 (Version 1)
Quarter: 2014Q4

REPORT INFORMATION
  Report Type: Spontaneous
  Country: RU (occurrence: RU)
  Receive Date: 20141001
  Receipt Date: 20141001
  Transmission Date: 20150528
  Serious: Yes (Other)
  Sender: FDA-Public Use
  Company Number: RU-BAYER-2014-144129

PATIENT
  Age: 18 Year
  Sex: Female

DRUGS (1)
  1. YAZ PLUS [Suspect]
     Active Substance: DROSPIRENONE\ETHINYL ESTRADIOL
     Indication: ENDOMETRIOSIS

REACTIONS (12)
  - Vulvovaginitis [None]
  - Product use issue [None]
  - Vulvovaginal erythema [None]
  - Candida infection [None]
  - Salpingo-oophoritis [None]
  - Ureaplasma infection [None]
  - Herpes virus infection [None]
  - Body temperature increased [None]
  - Cytomegalovirus infection [None]
  - Cervicitis [None]
  - Vulvovaginal pruritus [None]
  - Adnexa uteri pain [None]
